FAERS Safety Report 4691786-X (Version None)
Quarter: 2005Q2

REPORT INFORMATION
  Report Type: 
  Country: None (occurrence: None)
  Receive Date: 20050615
  Receipt Date: 20050615
  Transmission Date: 20051028
  Serious: Yes (Other)
  Sender: FDA-Public Use
  Company Number: None

PATIENT
  Age: 49 Year
  Sex: Male
  Weight: 70.3075 kg

DRUGS (1)
  1. LUNESTA [Suspect]
     Indication: INSOMNIA
     Dosage: 2MG, TAKE 1 TABLET BY MOUTH AT BEDTIME
     Route: 048
     Dates: start: 20050518, end: 20050525

REACTIONS (1)
  - PRURITUS GENERALISED [None]
